FAERS Safety Report 10929839 (Version 1)
Quarter: 2015Q1

REPORT INFORMATION
  Report Type: Spontaneous
  Country: SE (occurrence: SE)
  Receive Date: 20150319
  Receipt Date: 20150319
  Transmission Date: 20150721
  Serious: Yes (Disabling)
  Sender: FDA-Public Use
  Company Number: SE-ASTRAZENECA-2015SE22982

PATIENT
  Age: 25 Year
  Sex: Female

DRUGS (2)
  1. HYDROCORTISONE. [Suspect]
     Active Substance: HYDROCORTISONE
     Indication: BLOOD CORTISOL DECREASED
     Dosage: NON-ASTRAZENECA PRODUCT
     Route: 048
     Dates: start: 201312
  2. SYMBICORT [Suspect]
     Active Substance: BUDESONIDE\FORMOTEROL FUMARATE DIHYDRATE
     Indication: ASTHMA
     Dosage: 2-4 DOSES PER DAY
     Route: 055

REACTIONS (1)
  - Osteoporosis [Not Recovered/Not Resolved]
